FAERS Safety Report 4787054-8 (Version None)
Quarter: 2005Q3

REPORT INFORMATION
  Report Type: 
  Country: None (occurrence: None)
  Receive Date: 20050930
  Receipt Date: 20050919
  Transmission Date: 20060218
  Serious: Yes (Other)
  Sender: FDA-Public Use
  Company Number: 167-20785-05090138

PATIENT
  Age: 71 Year
  Sex: Male

DRUGS (7)
  1. THALIDOMIDE - PHARMION (THALIDOMIDE) (50 MILLIGRAM, CAPSULES) [Suspect]
     Indication: GASTRIC ANTRAL VASCULAR ECTASIA
     Dosage: SEE IMAGE
     Route: 048
     Dates: start: 20050817
  2. OMEPRAZOLE [Concomitant]
  3. FUROSEMIDE [Concomitant]
  4. LEVOTHYROXINE SODIUM [Concomitant]
  5. TRANEXAMIC ACID (TRANEXAMIC ACID) [Concomitant]
  6. PROPRANOLOL [Concomitant]
  7. ACETAMINOPHEN [Concomitant]

REACTIONS (5)
  - CONSTIPATION [None]
  - GASTRIC ULCER [None]
  - PRURITUS [None]
  - RASH [None]
  - SOMNOLENCE [None]
